FAERS Safety Report 9915036 (Version 3)
Quarter: 2014Q3

REPORT INFORMATION
  Report Type: Spontaneous
  Country: US (occurrence: US)
  Receive Date: 20140220
  Receipt Date: 20140715
  Transmission Date: 20150326
  Serious: Yes (Death, Hospitalization, Disabling, Other)
  Sender: FDA-Public Use
  Company Number: US-MERCK-1402USA009830

PATIENT
  Sex: Male
  Weight: 104.31 kg

DRUGS (8)
  1. VYTORIN [Concomitant]
     Active Substance: EZETIMIBE\SIMVASTATIN
     Indication: BLOOD CHOLESTEROL INCREASED
     Dosage: 10 MG, QD
     Dates: start: 1994, end: 201203
  2. METOPROLOL [Concomitant]
     Active Substance: METOPROLOL
     Indication: HYPERTENSION
     Dosage: UNK
     Dates: start: 1994, end: 201203
  3. BYETTA [Suspect]
     Active Substance: EXENATIDE
     Indication: TYPE 2 DIABETES MELLITUS
     Dosage: 10 MICROGRAM, BID
     Dates: start: 20060602, end: 201203
  4. LANTUS [Concomitant]
     Active Substance: INSULIN GLARGINE
     Indication: TYPE 2 DIABETES MELLITUS
     Dosage: 70U/10U
     Route: 058
     Dates: start: 200410, end: 20120327
  5. ALLOPURINOL. [Concomitant]
     Active Substance: ALLOPURINOL
     Indication: NEPHROLITHIASIS
     Dosage: 300 MG, QD
     Dates: start: 1994, end: 201203
  6. FUROSEMIDE. [Concomitant]
     Active Substance: FUROSEMIDE
     Indication: HYPERTENSION
     Dosage: UNK
     Dates: start: 1994, end: 201203
  7. JANUVIA [Suspect]
     Active Substance: SITAGLIPTIN PHOSPHATE
     Indication: TYPE 2 DIABETES MELLITUS
     Dosage: 50 MG, QD
     Route: 048
     Dates: start: 20100927, end: 201203
  8. LYRICA [Concomitant]
     Active Substance: PREGABALIN
     Indication: DIABETIC NEUROPATHY
     Dosage: 150 MG, BID
     Dates: start: 2000, end: 201203

REACTIONS (41)
  - Meniscus operation [Unknown]
  - Radiation oesophagitis [Unknown]
  - Normochromic normocytic anaemia [Unknown]
  - Peripheral swelling [Unknown]
  - Gastritis erosive [Unknown]
  - Dehydration [Unknown]
  - Renal failure chronic [Unknown]
  - Gastrooesophageal reflux disease [Unknown]
  - Drug ineffective [Unknown]
  - Renal failure [Recovering/Resolving]
  - Insulin-requiring type 2 diabetes mellitus [Unknown]
  - Pulmonary granuloma [Unknown]
  - Dysphagia [Unknown]
  - Diverticulum [Unknown]
  - Pain [Unknown]
  - Anxiety [Unknown]
  - Pancreatic carcinoma metastatic [Unknown]
  - Pancreatic carcinoma metastatic [Fatal]
  - Dysphonia [Unknown]
  - Respiratory disorder [Unknown]
  - Sleep apnoea syndrome [Unknown]
  - Metastases to lymph nodes [Unknown]
  - Bone disorder [Unknown]
  - Osteoarthritis [Unknown]
  - Oedema peripheral [Unknown]
  - Metastases to bone [Unknown]
  - Metastases to lung [Unknown]
  - Metastases to liver [Unknown]
  - Renal failure acute [Unknown]
  - Spinal column stenosis [Unknown]
  - Spinal osteoarthritis [Unknown]
  - Hiatus hernia [Unknown]
  - Nephrostomy [Unknown]
  - Renal cyst [Unknown]
  - Intervertebral disc degeneration [Unknown]
  - Vertebral foraminal stenosis [Unknown]
  - Blood potassium abnormal [Unknown]
  - Coronary artery disease [Unknown]
  - Skeletal injury [Unknown]
  - Constipation [Unknown]
  - Radiotherapy [Unknown]

NARRATIVE: CASE EVENT DATE: 20110706
